FAERS Safety Report 9279169 (Version 6)
Quarter: 2013Q2

REPORT INFORMATION
  Report Type: Spontaneous
  Country: AR (occurrence: AR)
  Receive Date: 20130508
  Receipt Date: 20130620
  Transmission Date: 20140414
  Serious: Yes (Hospitalization, Other)
  Sender: FDA-Public Use
  Company Number: AR-NOVOPROD-377116

PATIENT
  Sex: Male
  Weight: 3.67 kg

DRUGS (8)
  1. VICTOZA [Suspect]
     Indication: TYPE 2 DIABETES MELLITUS
     Dosage: 1.2 MG, BID
     Route: 064
     Dates: start: 201110, end: 20120828
  2. LEVEMIR FLEXPEN [Suspect]
     Indication: TYPE 2 DIABETES MELLITUS
     Route: 064
     Dates: start: 201108
  3. NOVORAPID [Suspect]
     Indication: TYPE 2 DIABETES MELLITUS
     Dosage: ACCORDING TO GLYCAEMIA LEVELS
     Route: 064
     Dates: start: 20120906
  4. ORLISTAT [Concomitant]
     Dosage: 120 MG, QD
     Route: 064
     Dates: end: 20120828
  5. LEVOTHYROXINE [Concomitant]
     Dosage: 100 ?G,QD
     Route: 064
  6. METFORMIN [Concomitant]
     Dosage: 2550 MG, QD
     Route: 064
     Dates: end: 201208
  7. ENALAPRIL [Concomitant]
     Dosage: 5 MG, UNK
     Route: 064
  8. ALDOMET                            /00000101/ [Concomitant]
     Indication: HYPERTENSION
     Dosage: 250 MG, BID
     Route: 064

REACTIONS (4)
  - Respiratory distress [Recovered/Resolved]
  - Premature baby [Unknown]
  - Hypoglycaemia [Recovered/Resolved]
  - Foetal exposure during pregnancy [Unknown]
